FAERS Safety Report 11489745 (Version 4)
Quarter: 2015Q4

REPORT INFORMATION
  Report Type: Spontaneous
  Country: JP (occurrence: JP)
  Receive Date: 20150910
  Receipt Date: 20151229
  Transmission Date: 20160304
  Serious: Yes (Life-Threatening, Hospitalization, Disabling, Other)
  Sender: FDA-Public Use
  Company Number: JP-GLAXOSMITHKLINE-JP2015JPN128196

PATIENT
  Age: 89 Year
  Sex: Male
  Weight: 52 kg

DRUGS (12)
  1. WARFARIN [Concomitant]
     Active Substance: WARFARIN
     Dosage: UNK
  2. GASCON [Concomitant]
     Active Substance: DIMETHICONE
     Dosage: UNK
  3. URSO [Concomitant]
     Active Substance: URSODIOL
     Dosage: UNK
  4. MAGLAX [Concomitant]
     Active Substance: MAGNESIUM OXIDE
     Dosage: UNK
  5. OFLOXACIN. [Concomitant]
     Active Substance: OFLOXACIN
     Dosage: UNK
  6. VALTREX [Suspect]
     Active Substance: VALACYCLOVIR HYDROCHLORIDE
     Indication: HERPES ZOSTER
     Dosage: 1000 MG, TID
     Route: 048
     Dates: start: 20150825, end: 20150830
  7. FUROSEMIDE. [Concomitant]
     Active Substance: FUROSEMIDE
     Dosage: UNK
  8. DIART [Concomitant]
     Active Substance: AZOSEMIDE
     Dosage: UNK
  9. URIEF [Concomitant]
     Active Substance: SILODOSIN
     Dosage: UNK
  10. ATOLANT [Concomitant]
     Dosage: UNK
  11. SLOW-K [Concomitant]
     Active Substance: POTASSIUM CHLORIDE
     Dosage: UNK
  12. BERAPROST SODIUM [Concomitant]
     Active Substance: BERAPROST SODIUM
     Dosage: UNK

REACTIONS (9)
  - Bedridden [Unknown]
  - Malaise [Not Recovered/Not Resolved]
  - Loss of consciousness [Not Recovered/Not Resolved]
  - Altered state of consciousness [Recovered/Resolved with Sequelae]
  - Decreased activity [Unknown]
  - Pneumonia bacterial [Recovering/Resolving]
  - Muscular weakness [Unknown]
  - Pneumonia aspiration [Recovering/Resolving]
  - Hypophagia [Unknown]

NARRATIVE: CASE EVENT DATE: 20150828
